FAERS Safety Report 19912576 (Version 2)
Quarter: 2023Q2

REPORT INFORMATION
  Report Type: Spontaneous
  Country: BE (occurrence: BE)
  Receive Date: 20211004
  Receipt Date: 20230523
  Transmission Date: 20230721
  Serious: Yes (Hospitalization, Other)
  Sender: FDA-Public Use
  Company Number: BE-SA-2021SA169952

PATIENT
  Age: 74 Year
  Weight: 95 kg

DRUGS (15)
  1. VORICONAZOLE [Interacting]
     Active Substance: VORICONAZOLE
     Indication: Aspergillus infection
     Dosage: 400 MILLIGRAM, BID (400 MG, Q12H (MAINTENANCE DOSE))
     Route: 065
  2. VORICONAZOLE [Interacting]
     Active Substance: VORICONAZOLE
     Dosage: 600 MILLIGRAM, BID (600 MG, Q12H (LOADING DOSE OF 600 MG Q12H ON THE FIRST DAY))
     Route: 065
  3. PIPERACILLIN AND TAZOBACTAM [Suspect]
     Active Substance: PIPERACILLIN SODIUM\TAZOBACTAM SODIUM
     Indication: Aspergillus infection
     Dosage: 4 GRAM, Q6H
     Route: 065
  4. VASOPRESSIN [Suspect]
     Active Substance: VASOPRESSIN
     Indication: Aspergillus infection
     Dosage: UNK
     Route: 065
  5. CASPOFUNGIN [Suspect]
     Active Substance: CASPOFUNGIN
     Indication: Aspergillus infection
     Dosage: 70 MILLIGRAM, QD (70 MG, Q24H)
     Route: 065
  6. RIFAMPIN [Interacting]
     Active Substance: RIFAMPIN
     Indication: Staphylococcal sepsis
     Dosage: 300 MILLIGRAM, Q8H (300 MG, Q8H)
     Route: 042
  7. RIFAMPIN [Interacting]
     Active Substance: RIFAMPIN
     Indication: Staphylococcal sepsis
     Dosage: UNK (RESTARTED)
     Route: 065
  8. ISAVUCONAZOLE [Interacting]
     Active Substance: ISAVUCONAZOLE
     Indication: Aspergillus infection
     Dosage: 200 MILLIGRAM, QD (200 MG, QD (MAINTENANCE DOSE FROM DAY 3))
     Route: 042
  9. ISAVUCONAZOLE [Interacting]
     Active Substance: ISAVUCONAZOLE
     Dosage: 200 MILLIGRAM, Q8H (200 MG, Q8H (LOADING DOSE))
     Route: 042
  10. ISAVUCONAZOLE [Interacting]
     Active Substance: ISAVUCONAZOLE
     Indication: Aspergillus infection
     Dosage: 500 MILLIGRAM (500 MG (DAY 14))
     Route: 065
  11. ISAVUCONAZOLE [Interacting]
     Active Substance: ISAVUCONAZOLE
     Dosage: 300 MILLIGRAM (300 MG (INCREASED TO 300 MG (DAY 8))
     Route: 065
  12. FLUCLOXACILLIN [Interacting]
     Active Substance: FLUCLOXACILLIN
     Indication: Staphylococcal sepsis
     Dosage: 2 GRAM, Q4H (2 G, Q4H)
     Route: 042
  13. GENTAMICIN [Concomitant]
     Active Substance: GENTAMICIN
     Indication: Staphylococcal sepsis
     Dosage: 450 MILLIGRAM, ONCE (450 MG (ONE DOSE) (1X))
     Route: 065
  14. RIFABUTIN [Concomitant]
     Active Substance: RIFABUTIN
     Indication: Staphylococcal sepsis
     Dosage: UNK
     Route: 048
  15. RIFABUTIN [Concomitant]
     Active Substance: RIFABUTIN
     Indication: Aspergillus infection

REACTIONS (7)
  - Hepatitis acute [Unknown]
  - Drug interaction [Unknown]
  - Hepatic function abnormal [Unknown]
  - Drug ineffective [Unknown]
  - Drug level decreased [Unknown]
  - Drug level below therapeutic [Unknown]
  - Product use in unapproved indication [Unknown]
